FAERS Safety Report 4663041-5 (Version None)
Quarter: 2005Q2

REPORT INFORMATION
  Report Type: 
  Country: None (occurrence: None)
  Receive Date: 20050506
  Receipt Date: 20050314
  Transmission Date: 20051028
  Serious: Yes (Other)
  Sender: FDA-Public Use
  Company Number: 1397

PATIENT
  Age: 21 Year
  Sex: Female
  Weight: 58.9676 kg

DRUGS (1)
  1. AMNESTEEM [Suspect]
     Indication: ACNE CYSTIC
     Dosage: 40MG IN AM,20 MG INPM, PO
     Route: 048
     Dates: start: 20041210, end: 20050124

REACTIONS (1)
  - DRUG EXPOSURE DURING PREGNANCY [None]
